FAERS Safety Report 7383382-0 (Version None)
Quarter: 2011Q1

REPORT INFORMATION
  Report Type: 
  Country: None (occurrence: None)
  Receive Date: 20110330
  Receipt Date: 20101018
  Transmission Date: 20110831
  Serious: Yes (Hospitalization, Other)
  Sender: FDA-Public Use
  Company Number: US-BAYER-200937028NA

PATIENT
  Sex: Female
  Weight: 84.091 kg

DRUGS (2)
  1. YAZ [Suspect]
     Dates: start: 20080301, end: 20090501
  2. YASMIN [Suspect]

REACTIONS (3)
  - CHOLECYSTECTOMY [None]
  - CHOLECYSTITIS ACUTE [None]
  - CHOLELITHIASIS [None]
